FAERS Safety Report 5158111-1 (Version None)
Quarter: 2006Q4

REPORT INFORMATION
  Report Type: 
  Country: None (occurrence: None)
  Receive Date: 20061127
  Receipt Date: 20061117
  Transmission Date: 20070319
  Serious: Yes (Death, Other)
  Sender: FDA-Public Use
  Company Number: US-MERCK-0611USA05357B2

PATIENT
  Sex: Male
  Weight: 1 kg

DRUGS (2)
  1. INDOCIN [Suspect]
     Indication: THREATENED LABOUR
     Route: 064
  2. TERBUTALINE SULFATE [Concomitant]
     Indication: THREATENED LABOUR
     Route: 064

REACTIONS (5)
  - FOETAL DISTRESS SYNDROME [None]
  - GROUP B STREPTOCOCCUS NEONATAL SEPSIS [None]
  - HYDROPS FOETALIS [None]
  - PREMATURE BABY [None]
  - RESPIRATORY FAILURE [None]
